FAERS Safety Report 6085249-7 (Version None)
Quarter: 2009Q1

REPORT INFORMATION
  Report Type: 
  Country: None (occurrence: None)
  Receive Date: 20090220
  Receipt Date: 20090212
  Transmission Date: 20090719
  Serious: Yes (Other)
  Sender: FDA-Public Use
  Company Number: GR-AVENTIS-200911500GDDC

PATIENT
  Age: 52 Year
  Sex: Female

DRUGS (1)
  1. ARAVA [Suspect]

REACTIONS (1)
  - DEEP VEIN THROMBOSIS [None]
